FAERS Safety Report 23370871 (Version 1)
Quarter: 2024Q1

REPORT INFORMATION
  Report Type: Spontaneous
  Country: US (occurrence: None)
  Receive Date: 20240105
  Receipt Date: 20240105
  Transmission Date: 20240409
  Serious: No
  Sender: FDA-Public Use
  Company Number: None

PATIENT
  Sex: Female

DRUGS (2)
  1. CAPECITABINE [Suspect]
     Active Substance: CAPECITABINE
     Indication: Rectal cancer
     Dosage: 500MG TABLETS: TAKE 3 TABLETS BY MOUTH EVERY 12 HOURS ON RADIATION TREATMENT DAYS MONDAY-FRIDAY WITH
     Route: 048
     Dates: start: 202310
  2. CAPECITABINE [Suspect]
     Active Substance: CAPECITABINE
     Indication: Rectal cancer
     Dosage: ?150MG TABLETS: TAKE 1 TABLET BY MOUTH EVERY 12 HOURS ON RADIATION TREATMENT DAYS MONDAY-FRIDAY WIT
     Route: 048
     Dates: start: 202310

REACTIONS (1)
  - Emergency care [None]
